FAERS Safety Report 15299469 (Version 1)
Quarter: 2018Q3

REPORT INFORMATION
  Report Type: Spontaneous
  Country: DE (occurrence: DE)
  Receive Date: 20180821
  Receipt Date: 20180821
  Transmission Date: 20181010
  Serious: Yes (Death, Life-Threatening, Other)
  Sender: FDA-Public Use
  Company Number: DE-TEVA-2018-DE-945274

PATIENT
  Age: 68 Year
  Sex: Male

DRUGS (16)
  1. HALOPERIDOL. [Suspect]
     Active Substance: HALOPERIDOL
     Dosage: 15 MILLIGRAM DAILY;
     Route: 048
     Dates: start: 20171109, end: 20171109
  2. HALOPERIDOL. [Suspect]
     Active Substance: HALOPERIDOL
     Dosage: 8 MILLIGRAM DAILY;
     Route: 048
     Dates: start: 20171122, end: 20171122
  3. HALOPERIDOL. [Suspect]
     Active Substance: HALOPERIDOL
     Dosage: 7.5 MILLIGRAM DAILY;
     Route: 048
     Dates: start: 20171117, end: 20171119
  4. HALOPERIDOL. [Suspect]
     Active Substance: HALOPERIDOL
     Dosage: 10 MILLIGRAM DAILY;
     Route: 048
     Dates: start: 20171108, end: 20171108
  5. RISPERIDONE. [Suspect]
     Active Substance: RISPERIDONE
     Dosage: 2.5 MILLIGRAM DAILY;
     Route: 048
     Dates: start: 20171123, end: 20171123
  6. RISPERIDONE. [Suspect]
     Active Substance: RISPERIDONE
     Dosage: 2 MILLIGRAM DAILY;
     Route: 048
     Dates: start: 20171121, end: 20171122
  7. TAMSULOSIN [Concomitant]
     Active Substance: TAMSULOSIN
     Dosage: .4 MILLIGRAM DAILY;
     Dates: start: 20100101
  8. HALOPERIDOL. [Suspect]
     Active Substance: HALOPERIDOL
     Dosage: 5 MILLIGRAM DAILY;
     Route: 048
     Dates: start: 20171116, end: 20171116
  9. HALOPERIDOL. [Suspect]
     Active Substance: HALOPERIDOL
     Dosage: 20 MILLIGRAM DAILY;
     Route: 048
     Dates: start: 20171110, end: 20171113
  10. RISPERIDONE. [Suspect]
     Active Substance: RISPERIDONE
     Dosage: 1.5 MILLIGRAM DAILY;
     Route: 048
     Dates: start: 20171031
  11. HALOPERIDOL. [Suspect]
     Active Substance: HALOPERIDOL
     Dosage: 2.5 MILLIGRAM DAILY;
     Route: 048
     Dates: start: 20171121, end: 20171121
  12. HALOPERIDOL. [Suspect]
     Active Substance: HALOPERIDOL
     Dosage: 17.5 MILLIGRAM DAILY;
     Route: 048
     Dates: start: 20171114, end: 20171114
  13. HALOPERIDOL. [Suspect]
     Active Substance: HALOPERIDOL
     Dosage: 2.5 MILLIGRAM DAILY;
     Route: 048
     Dates: start: 20171124
  14. HALOPERIDOL. [Suspect]
     Active Substance: HALOPERIDOL
     Dosage: 2.5 MILLIGRAM DAILY;
     Route: 048
     Dates: start: 20171115, end: 20171115
  15. RISPERIDONE. [Suspect]
     Active Substance: RISPERIDONE
     Dosage: 3 MILLIGRAM DAILY;
     Route: 048
     Dates: start: 20171124
  16. RISPERIDONE. [Suspect]
     Active Substance: RISPERIDONE
     Dosage: 2 MILLIGRAM DAILY;
     Route: 048
     Dates: start: 20171116, end: 20171119

REACTIONS (2)
  - Pulse absent [Unknown]
  - Death [Fatal]

NARRATIVE: CASE EVENT DATE: 20171125
